FAERS Safety Report 22208998 (Version 1)
Quarter: 2023Q2

REPORT INFORMATION
  Report Type: Report from Study
  Country: BR (occurrence: BR)
  Receive Date: 20230413
  Receipt Date: 20230413
  Transmission Date: 20230722
  Serious: Yes (Hospitalization)
  Sender: FDA-Public Use
  Company Number: BR-AKCEA THERAPEUTICS, INC.-2022IS004082

PATIENT

DRUGS (1)
  1. TEGSEDI [Suspect]
     Active Substance: INOTERSEN SODIUM
     Indication: Hereditary neuropathic amyloidosis
     Dosage: 284 MG/1.5 ML, QWK
     Route: 058
     Dates: start: 20220503

REACTIONS (6)
  - Pulmonary oedema [Recovered/Resolved]
  - Fluid retention [Recovered/Resolved]
  - Swelling [Recovered/Resolved]
  - Urinary retention [Recovered/Resolved]
  - Renal disorder [Unknown]
  - Platelet count decreased [Not Recovered/Not Resolved]
